FAERS Safety Report 10081294 (Version 3)
Quarter: 2014Q3

REPORT INFORMATION
  Report Type: Spontaneous
  Country: US (occurrence: US)
  Receive Date: 20140416
  Receipt Date: 20140724
  Transmission Date: 20150326
  Serious: Yes (Death, Hospitalization, Disabling)
  Sender: FDA-Public Use
  Company Number: US-JNJFOC-20140406372

PATIENT
  Sex: Male

DRUGS (1)
  1. ZYTIGA [Suspect]
     Active Substance: ABIRATERONE ACETATE
     Indication: PROSTATE CANCER
     Dosage: 250 MGX4
     Route: 048
     Dates: start: 20130211, end: 201312

REACTIONS (4)
  - Hemiparesis [Unknown]
  - Neoplasm malignant [Unknown]
  - Hypoaesthesia [Unknown]
  - Death [Fatal]
